FAERS Safety Report 20959290 (Version 2)
Quarter: 2022Q2

REPORT INFORMATION
  Report Type: Report from Study
  Country: MX (occurrence: MX)
  Receive Date: 20220614
  Receipt Date: 20220630
  Transmission Date: 20220721
  Serious: Yes (Death, Hospitalization)
  Sender: FDA-Public Use
  Company Number: MX-002147023-NVSC2022MX131173

PATIENT

DRUGS (2)
  1. RUXOLITINIB [Suspect]
     Active Substance: RUXOLITINIB
     Indication: Bone marrow transplant rejection
     Dosage: 5 MG, BID (1 (5MG) BID)
     Route: 048
     Dates: start: 202202
  2. RUXOLITINIB [Suspect]
     Active Substance: RUXOLITINIB
     Indication: Bone marrow transplant
     Dosage: 5 MG, Q12H (1)
     Route: 048
     Dates: start: 202202, end: 202206

REACTIONS (4)
  - Bone marrow transplant rejection [Fatal]
  - Bronchitis [Fatal]
  - Lung disorder [Not Recovered/Not Resolved]
  - Product use in unapproved indication [Unknown]

NARRATIVE: CASE EVENT DATE: 20220501
